FAERS Safety Report 6247405-4 (Version None)
Quarter: 2009Q2

REPORT INFORMATION
  Report Type: 
  Country: None (occurrence: None)
  Receive Date: 20090626
  Receipt Date: 20090618
  Transmission Date: 20091009
  Serious: Yes (Hospitalization, Other)
  Sender: FDA-Public Use
  Company Number: US-PFIZER INC-2009195618

PATIENT
  Sex: Male
  Weight: 87 kg

DRUGS (4)
  1. AMLODIPINE BESYLATE [Suspect]
     Indication: HYPERTENSION
  2. ENALAPRIL [Concomitant]
     Dosage: UNK
  3. WARFARIN [Concomitant]
  4. VIAGRA [Concomitant]

REACTIONS (5)
  - ANKLE ARTHROPLASTY [None]
  - BLOOD PRESSURE INADEQUATELY CONTROLLED [None]
  - CARTILAGE INJURY [None]
  - HIP ARTHROPLASTY [None]
  - SHOULDER ARTHROPLASTY [None]
